FAERS Safety Report 5179081-6 (Version None)
Quarter: 2006Q4

REPORT INFORMATION
  Report Type: 
  Country: None (occurrence: None)
  Receive Date: 20061208
  Receipt Date: 20061205
  Transmission Date: 20070319
  Serious: Yes (Death)
  Sender: FDA-Public Use
  Company Number: TCI2006A05470

PATIENT
  Age: 86 Year
  Sex: Male

DRUGS (3)
  1. LEUPLIN SR FOR INJECTION KIT 11.25 (LEUPROLIDE ACETATE) (INJECTION) [Suspect]
     Indication: PROSTATE CANCER STAGE IV
     Dosage: 11.25 MG (11.25 MG, 1 IN 1 12 WK)
     Route: 058
     Dates: start: 20060707, end: 20060707
  2. CASODEX [Concomitant]
  3. HARNAL (TAMSULOSIN HYDROCHLORIDE) (TABLETS) [Concomitant]

REACTIONS (5)
  - CEREBRAL HAEMORRHAGE [None]
  - INJECTION SITE ABSCESS [None]
  - INJECTION SITE INDURATION [None]
  - NEOPLASM SKIN [None]
  - URINARY TRACT INFECTION [None]
